FAERS Safety Report 9552186 (Version 3)
Quarter: 2013Q4

REPORT INFORMATION
  Report Type: Report from Study
  Country: DE (occurrence: DE)
  Receive Date: 20130925
  Receipt Date: 20131025
  Transmission Date: 20140711
  Serious: Yes (Life-Threatening, Hospitalization, Other)
  Sender: FDA-Public Use
  Company Number: DE-ASTELLAS-2011EU005776

PATIENT
  Age: 66 Year
  Sex: Male
  Weight: 95 kg

DRUGS (32)
  1. TACROLIMUS MR4 CAPSULES [Suspect]
     Indication: RENAL TRANSPLANT
     Dosage: 10 MG, UID/QD
     Route: 048
     Dates: start: 20110516
  2. TACROLIMUS MR4 CAPSULES [Suspect]
     Dosage: 5 MG, UNKNOWN/D
     Route: 048
     Dates: start: 20120204, end: 20120312
  3. TACROLIMUS MR4 CAPSULES [Suspect]
     Dosage: 6 MG, UNKNOWN/D
     Route: 048
     Dates: start: 20120313
  4. THYMOGLOBULIN [Suspect]
     Indication: RENAL TRANSPLANT
     Dosage: 165 MG, UID/QD
     Route: 042
     Dates: start: 20110516
  5. CELLCEPT [Suspect]
     Indication: RENAL TRANSPLANT
     Dosage: 1000 MG, BID
     Route: 048
     Dates: start: 20110516, end: 201108
  6. CELLCEPT [Suspect]
     Dosage: 500 MG, UID/QD
     Route: 048
     Dates: start: 201108
  7. PREDNISOLONE [Suspect]
     Indication: RENAL TRANSPLANT
     Dosage: 10 MG, UID/QD
     Route: 048
     Dates: start: 20110516
  8. PREDNISOLONE [Suspect]
     Dosage: 10 MG, UID/QD
     Route: 048
     Dates: start: 20120218
  9. PREDNISOLONE [Suspect]
     Dosage: 15 MG, UNKNOWN/D
     Route: 048
     Dates: start: 20120516
  10. PREDNISOLONE [Suspect]
     Dosage: 5 MG, UNKNOWN/D
     Route: 065
  11. ASS [Concomitant]
     Dosage: 100 MG, UNKNOWN/D
     Route: 065
     Dates: start: 2011
  12. ASS [Concomitant]
     Dosage: 500 MG, UNKNOWN/D
     Route: 065
     Dates: start: 20110722
  13. ALLOPURINOL [Concomitant]
     Dosage: 100 MG, UNKNOWN/D
     Route: 065
     Dates: start: 2011, end: 20111028
  14. GABAPENTIN [Concomitant]
     Dosage: 300 MG, UNKNOWN/D
     Route: 065
     Dates: start: 2011
  15. TILIDINE [Concomitant]
     Dosage: UNK
     Route: 065
  16. PANTOZOL [Concomitant]
     Dosage: 40 MG, UID/QD
     Route: 065
  17. ARANESP [Concomitant]
     Dosage: 40 UG, WEEKLY
     Route: 065
  18. NORVASC [Concomitant]
     Dosage: 5 MG, UNKNOWN/D
     Route: 065
  19. SIMVASTATIN [Concomitant]
     Dosage: 10 MG, UNKNOWN/D
     Route: 065
  20. SIMVAHEXAL [Concomitant]
     Dosage: 40 MG, UNKNOWN/D
     Route: 065
     Dates: start: 2011
  21. SIMVAHEXAL [Concomitant]
     Dosage: 10 MG, UNKNOWN/D
     Route: 065
  22. MARCUMAR [Concomitant]
     Dosage: UNK
     Route: 065
  23. COTRIM [Concomitant]
     Dosage: 480 MG, TID
     Route: 065
  24. HEPARIN [Concomitant]
     Dosage: UNK %, UNKNOWN/D
     Route: 065
     Dates: start: 20110722, end: 20110722
  25. TAMOXIFEN [Concomitant]
     Dosage: 5 MG, UNKNOWN/D
     Route: 065
     Dates: start: 20120203
  26. BICARBONATE [Concomitant]
     Dosage: 3 G, UID/QD
     Route: 065
  27. LISIHEXAL [Concomitant]
     Dosage: 5 MG, UID/QD
     Route: 065
     Dates: end: 20120201
  28. SULTANOL [Concomitant]
     Dosage: UNK
     Route: 065
     Dates: start: 20120205
  29. ATROVENT [Concomitant]
     Dosage: UNK
     Route: 065
     Dates: start: 20120205
  30. SPIRIVA [Concomitant]
     Dosage: 18 UG, UNKNOWN/D
     Route: 065
     Dates: start: 20120205
  31. FORADIL [Concomitant]
     Dosage: 12 UG, UNKNOWN/D
     Route: 065
     Dates: start: 20120312
  32. TORASEMIDE [Concomitant]
     Dosage: 10 UG, UNKNOWN/D
     Route: 065
     Dates: start: 20130203

REACTIONS (18)
  - Coronary artery stenosis [Recovered/Resolved]
  - Acute myocardial infarction [Recovered/Resolved]
  - Transplant dysfunction [Recovered/Resolved with Sequelae]
  - Chest pain [Unknown]
  - Postoperative wound infection [Recovered/Resolved]
  - Urinary tract infection [Recovered/Resolved]
  - Urinary tract infection [Recovered/Resolved]
  - Transplant failure [Recovered/Resolved]
  - Endocarditis [Recovered/Resolved]
  - Transplant rejection [Recovered/Resolved]
  - Pneumonia [Recovered/Resolved]
  - Urinary tract infection [Unknown]
  - Bronchitis [Recovered/Resolved]
  - Paresis [Recovered/Resolved with Sequelae]
  - Diarrhoea [Unknown]
  - C-reactive protein increased [Not Recovered/Not Resolved]
  - Urinary tract infection [Recovered/Resolved]
  - Infection [Unknown]
